FAERS Safety Report 5387460-7 (Version None)
Quarter: 2007Q3

REPORT INFORMATION
  Report Type: 
  Country: None (occurrence: None)
  Receive Date: 20070716
  Receipt Date: 20070704
  Transmission Date: 20080115
  Serious: Yes (Other)
  Sender: FDA-Public Use
  Company Number: IT-JNJFOC-20070701303

PATIENT
  Age: 29 Year
  Sex: Male

DRUGS (1)
  1. INFLIXIMAB [Suspect]
     Indication: BEHCET'S SYNDROME
     Dosage: FOR 3 INFUSIONS

REACTIONS (2)
  - BEHCET'S SYNDROME [None]
  - PULMONARY TUBERCULOSIS [None]
